FAERS Safety Report 9072903 (Version 1)
Quarter: 2013Q1

REPORT INFORMATION
  Report Type: Spontaneous
  Country: US (occurrence: US)
  Receive Date: 20130207
  Receipt Date: 20130207
  Transmission Date: 20140127
  Serious: Yes (Other)
  Sender: FDA-Public Use
  Company Number: US-SANOFI-AVENTIS-2013SA010591

PATIENT
  Age: 42 Year
  Sex: Female

DRUGS (7)
  1. LANTUS [Suspect]
  2. LANTUS SOLOSTAR [Suspect]
     Indication: TYPE 2 DIABETES MELLITUS
     Dosage: DOSE FREQUENCY: OMCE OR TWICE DOSE:33 UNIT(S)
     Route: 051
  3. SOLOSTAR [Suspect]
     Indication: TYPE 2 DIABETES MELLITUS
  4. METFORMIN [Suspect]
  5. SULINDAC [Suspect]
  6. LISINOPRIL [Suspect]
  7. NOVOLOG [Concomitant]

REACTIONS (3)
  - Renal failure chronic [Not Recovered/Not Resolved]
  - Hyperglycaemia [Not Recovered/Not Resolved]
  - Blood glucose increased [Not Recovered/Not Resolved]
